FAERS Safety Report 5410077-2 (Version None)
Quarter: 2007Q3

REPORT INFORMATION
  Report Type: 
  Country: None (occurrence: None)
  Receive Date: 20070809
  Receipt Date: 20070801
  Transmission Date: 20080115
  Serious: Yes (Other)
  Sender: FDA-Public Use
  Company Number: US-AMGEN-STX235160

PATIENT
  Sex: Female
  Weight: 64.5 kg

DRUGS (3)
  1. ENBREL [Suspect]
     Indication: RHEUMATOID ARTHRITIS
     Route: 058
     Dates: start: 20070619, end: 20070705
  2. PREDNISONE [Concomitant]
     Route: 065
     Dates: start: 20070215
  3. SYNTHROID [Concomitant]
     Route: 065
     Dates: start: 20000101

REACTIONS (5)
  - HYPOAESTHESIA [None]
  - LIVEDO RETICULARIS [None]
  - MUSCULAR WEAKNESS [None]
  - NEUROPATHY PERIPHERAL [None]
  - PARAESTHESIA [None]
